FAERS Safety Report 21389970 (Version 1)
Quarter: 2022Q3

REPORT INFORMATION
  Report Type: Spontaneous
  Country: MY (occurrence: MY)
  Receive Date: 20220929
  Receipt Date: 20220929
  Transmission Date: 20221027
  Serious: Yes (Congenital Anomaly, Other)
  Sender: FDA-Public Use
  Company Number: MY-GILEAD-2022-0599120

PATIENT

DRUGS (6)
  1. VIREAD [Suspect]
     Active Substance: TENOFOVIR DISOPROXIL FUMARATE
     Indication: Chronic hepatitis B
     Dosage: UNK
     Route: 065
  2. DECITABINE [Suspect]
     Active Substance: DECITABINE
     Indication: Acute myeloid leukaemia
     Dosage: 10 MG/M2
     Route: 064
     Dates: start: 20160715, end: 20170207
  3. IDARUBICIN [Concomitant]
     Active Substance: IDARUBICIN
  4. CYTARABINE\DAUNORUBICIN [Concomitant]
     Active Substance: CYTARABINE\DAUNORUBICIN
  5. FLUDARABINE [Concomitant]
     Active Substance: FLUDARABINE PHOSPHATE
  6. DAUNORUBICIN [Concomitant]
     Active Substance: DAUNORUBICIN

REACTIONS (8)
  - Holoprosencephaly [Unknown]
  - Hypotelorism of orbit [Unknown]
  - Congenital nose malformation [Unknown]
  - Craniofacial deformity [Unknown]
  - Cleft lip and palate [Unknown]
  - Polydactyly [Unknown]
  - Vertical talus [Unknown]
  - Foetal exposure during pregnancy [Recovered/Resolved]
